FAERS Safety Report 6779237-2 (Version None)
Quarter: 2010Q2

REPORT INFORMATION
  Report Type: 
  Country: None (occurrence: None)
  Receive Date: 20100618
  Receipt Date: 20100610
  Transmission Date: 20101027
  Serious: Yes (Hospitalization, Other)
  Sender: FDA-Public Use
  Company Number: US-ROCHE-701203

PATIENT
  Sex: Female
  Weight: 91.6 kg

DRUGS (10)
  1. BEVACIZUMAB [Suspect]
     Route: 065
     Dates: start: 20100413
  2. EVEROLIMUS [Suspect]
     Route: 065
     Dates: start: 20100413
  3. LBH589 [Suspect]
     Dosage: TUE, THURS, SAT.
     Route: 048
     Dates: start: 20100413
  4. DIOVAN HCT [Concomitant]
  5. PROTONIX [Concomitant]
  6. MEGACE [Concomitant]
  7. MS CONTIN [Concomitant]
  8. KYTRIL [Concomitant]
  9. ATIVAN [Concomitant]
  10. MIRALAX [Concomitant]

REACTIONS (4)
  - ABDOMINAL PAIN [None]
  - ABDOMINAL PAIN UPPER [None]
  - CHEST PAIN [None]
  - OESOPHAGITIS [None]
